FAERS Safety Report 19736797 (Version 1)
Quarter: 2021Q3

REPORT INFORMATION
  Report Type: Report from Study
  Country: ES (occurrence: ES)
  Receive Date: 20210823
  Receipt Date: 20210823
  Transmission Date: 20211014
  Serious: Yes (Hospitalization)
  Sender: FDA-Public Use
  Company Number: ES-BAUSCH-BL-2021-027843

PATIENT
  Age: 15 Year
  Sex: Male
  Weight: 38 kg

DRUGS (3)
  1. GENTAMICIN (1642A) [Suspect]
     Active Substance: GENTAMICIN SULFATE
     Indication: ENDOCARDITIS
     Dosage: 120 MGR, 1 TIME A DAY
     Route: 042
     Dates: start: 20200109, end: 20200122
  2. ACETYLSALICYLIC ACID (176A) [Concomitant]
     Indication: ENDOCARDITIS
     Dosage: 100 MGR, 1 TIME A DAY
     Route: 048
     Dates: start: 20200109, end: 20200211
  3. CEFTRIAXONE (501A) [Suspect]
     Active Substance: CEFTRIAXONE
     Indication: ENDOCARDITIS
     Dosage: 2 GR, 1 ONCE A DAY
     Route: 042
     Dates: start: 20200109, end: 20200122

REACTIONS (1)
  - Drug reaction with eosinophilia and systemic symptoms [Recovered/Resolved]

NARRATIVE: CASE EVENT DATE: 20200118
